FAERS Safety Report 7732420-1 (Version None)
Quarter: 2011Q3

REPORT INFORMATION
  Report Type: 
  Country: None (occurrence: None)
  Receive Date: 20110906
  Receipt Date: 20110824
  Transmission Date: 20111222
  Serious: Yes (Other)
  Sender: FDA-Public Use
  Company Number: CA-US-EMD SERONO, INC.-7079166

PATIENT
  Sex: Female

DRUGS (4)
  1. LIPITOR [Concomitant]
     Route: 048
  2. REBIF [Suspect]
     Indication: PRODUCT USED FOR UNKNOWN INDICATION
     Route: 058
  3. PANTOPRAZOLE SODIUM [Concomitant]
     Route: 048
  4. GLYCON [Concomitant]
     Route: 048

REACTIONS (3)
  - THROMBOSIS [None]
  - CONVULSION [None]
  - CLAVICLE FRACTURE [None]
